FAERS Safety Report 7673353-9 (Version None)
Quarter: 2011Q3

REPORT INFORMATION
  Report Type: 
  Country: None (occurrence: None)
  Receive Date: 20110810
  Receipt Date: 20110801
  Transmission Date: 20111222
  Serious: Yes (Hospitalization)
  Sender: FDA-Public Use
  Company Number: US-JNJFOC-20080802242

PATIENT
  Sex: Male
  Weight: 61.2 kg

DRUGS (5)
  1. OMEPRAZOLE [Concomitant]
     Indication: ANTACID THERAPY
  2. CIPROFLOXACIN HCL [Concomitant]
  3. REMICADE [Suspect]
     Indication: COLITIS ULCERATIVE
     Dosage: TOTAL 2 DOSES
     Route: 042
     Dates: start: 20070814, end: 20071122
  4. PREDNISONE [Concomitant]
  5. METRONIDAZOLE [Concomitant]

REACTIONS (1)
  - COLITIS ULCERATIVE [None]
